FAERS Safety Report 10874375 (Version 2)
Quarter: 2015Q1

REPORT INFORMATION
  Report Type: Spontaneous
  Country: GB (occurrence: GB)
  Receive Date: 20150227
  Receipt Date: 20150303
  Transmission Date: 20150721
  Serious: Yes (Hospitalization)
  Sender: FDA-Public Use
  Company Number: GB-BAXTER-2015BAX009657

PATIENT
  Age: 68 Year
  Sex: Female

DRUGS (6)
  1. MESNA. [Concomitant]
     Active Substance: MESNA
     Indication: CYSTITIS HAEMORRHAGIC
     Dosage: PRE-CYCLO
     Route: 065
     Dates: start: 20150128
  2. CYCLOPHOSPHAMIDE INJECTION 500 MG [Suspect]
     Active Substance: CYCLOPHOSPHAMIDE
     Indication: IMMUNOSUPPRESSION
     Dosage: IN 25 ML PRE-FILLED SYRINGE
     Route: 042
     Dates: start: 20150128, end: 20150128
  3. MESNA. [Concomitant]
     Active Substance: MESNA
     Dosage: 2 HOURS POST INFUSION
     Route: 065
     Dates: start: 20150128
  4. MESNA. [Concomitant]
     Active Substance: MESNA
     Dosage: 6 HOURS POST INFUSION
     Route: 065
     Dates: start: 20150128
  5. DOMPERIDONE [Concomitant]
     Active Substance: DOMPERIDONE
     Indication: ANTIEMETIC SUPPORTIVE CARE
     Dosage: PRE-INFUSION
     Route: 065
     Dates: start: 20150128, end: 20150131
  6. SODIUM CHLORIDE 0.9% INTRAVENOUS INFUSION BP [Suspect]
     Active Substance: SODIUM CHLORIDE
     Indication: PRODUCT USED FOR UNKNOWN INDICATION
     Route: 065

REACTIONS (1)
  - Alopecia [Recovering/Resolving]

NARRATIVE: CASE EVENT DATE: 20150129
